FAERS Safety Report 16707627 (Version 2)
Quarter: 2019Q3

REPORT INFORMATION
  Report Type: Spontaneous
  Country: US (occurrence: US)
  Receive Date: 20190815
  Receipt Date: 20190821
  Transmission Date: 20191004
  Serious: No
  Sender: FDA-Public Use
  Company Number: US-TEVA-2019-US-1092935

PATIENT
  Sex: Female

DRUGS (2)
  1. TOBRAMYCIN. [Suspect]
     Active Substance: TOBRAMYCIN
     Indication: MYCOBACTERIAL INFECTION
     Dosage: FORM STRENGTH: 300 MG/ 5 ML, FREQUENCY: USED ABOUT 4-5 TIMES
     Route: 065
     Dates: start: 201904
  2. TOBRAMYCIN. [Suspect]
     Active Substance: TOBRAMYCIN
     Indication: LUNG INFECTION

REACTIONS (7)
  - Loss of personal independence in daily activities [Unknown]
  - Fatigue [Unknown]
  - Feeling abnormal [Unknown]
  - Somnolence [Unknown]
  - Drug ineffective [Unknown]
  - Dizziness [Unknown]
  - Cough [Unknown]
